FAERS Safety Report 15947309 (Version 2)
Quarter: 2019Q1

REPORT INFORMATION
  Report Type: Spontaneous
  Country: US (occurrence: US)
  Receive Date: 20190211
  Receipt Date: 20190219
  Transmission Date: 20190417
  Serious: Yes (Other)
  Sender: FDA-Public Use
  Company Number: US-ASTRAZENECA-2018SF26985

PATIENT
  Sex: Female

DRUGS (33)
  1. NEXIUM [Suspect]
     Active Substance: ESOMEPRAZOLE MAGNESIUM
     Dosage: 40.0MG UNKNOWN
     Route: 048
     Dates: start: 20080814
  2. SERTRALINE [Concomitant]
     Active Substance: SERTRALINE HYDROCHLORIDE
  3. AMITRIPTYLINE [Concomitant]
     Active Substance: AMITRIPTYLINE
  4. NITROFURANTOIN. [Concomitant]
     Active Substance: NITROFURANTOIN
  5. FENOFIBRATE. [Concomitant]
     Active Substance: FENOFIBRATE
  6. ZOLPIDEM [Concomitant]
     Active Substance: ZOLPIDEM\ZOLPIDEM TARTRATE
  7. AZITHROMYCIN ANHYDROUS. [Concomitant]
     Active Substance: AZITHROMYCIN ANHYDROUS
  8. PROMETHAZINE [Concomitant]
     Active Substance: PROMETHAZINE\PROMETHAZINE HYDROCHLORIDE
  9. METHYLPREDNISOLONE. [Concomitant]
     Active Substance: METHYLPREDNISOLONE
  10. MEPROZINE [Concomitant]
  11. NEXIUM [Suspect]
     Active Substance: ESOMEPRAZOLE MAGNESIUM
     Route: 048
     Dates: start: 20051031, end: 20101014
  12. CLINDAMYCIN. [Concomitant]
     Active Substance: CLINDAMYCIN
  13. FENOFIBRATE. [Concomitant]
     Active Substance: FENOFIBRATE
  14. PREVACID [Suspect]
     Active Substance: LANSOPRAZOLE
     Route: 065
     Dates: start: 20051031, end: 20101014
  15. CARISOPRODOL. [Concomitant]
     Active Substance: CARISOPRODOL
  16. OXYCODONE /ACETAM [Concomitant]
  17. VITAMIN D2 [Concomitant]
     Active Substance: ERGOCALCIFEROL
  18. ALINIA [Concomitant]
     Active Substance: NITAZOXANIDE
  19. LEVAQUIN [Concomitant]
     Active Substance: LEVOFLOXACIN
  20. PREVACID [Suspect]
     Active Substance: LANSOPRAZOLE
     Dosage: 30.0MG UNKNOWN
     Route: 065
  21. ALPRAZOLAM. [Concomitant]
     Active Substance: ALPRAZOLAM
  22. FEMRING [Concomitant]
     Active Substance: ESTRADIOL ACETATE
  23. TIZANIDINE. [Concomitant]
     Active Substance: TIZANIDINE
  24. METHOCARBAMOL. [Concomitant]
     Active Substance: METHOCARBAMOL
  25. FLEXERIL [Concomitant]
     Active Substance: CYCLOBENZAPRINE HYDROCHLORIDE
  26. ALENDRONATE [Concomitant]
     Active Substance: ALENDRONATE SODIUM
  27. MEPERITAB [Concomitant]
     Active Substance: MEPERIDINE HYDROCHLORIDE
  28. PRAVASTATIN. [Concomitant]
     Active Substance: PRAVASTATIN
  29. OMEPRAZOLE. [Concomitant]
     Active Substance: OMEPRAZOLE
  30. FLUCONAZOLE. [Concomitant]
     Active Substance: FLUCONAZOLE
  31. SIMVASTATIN. [Concomitant]
     Active Substance: SIMVASTATIN
  32. RANITIDINE. [Concomitant]
     Active Substance: RANITIDINE
  33. PREMARIN [Concomitant]
     Active Substance: ESTROGENS, CONJUGATED

REACTIONS (5)
  - Chronic kidney disease-mineral and bone disorder [Unknown]
  - Gastrooesophageal reflux disease [Unknown]
  - Acute kidney injury [Unknown]
  - End stage renal disease [Unknown]
  - Chronic kidney disease [Unknown]
